FAERS Safety Report 8559403 (Version 2)
Quarter: 2013Q2

REPORT INFORMATION
  Report Type: Spontaneous
  Country: US (occurrence: None)
  Receive Date: 20120315
  Receipt Date: 20121031
  Transmission Date: 20140414
  Serious: Yes (Other)
  Sender: FDA-Public Use
  Company Number: PHHY2011US34253

PATIENT
  Age: 43 Year
  Sex: Female
  Weight: 83.9 kg

DRUGS (7)
  1. GILENYA (FTY) CAPSULE, 0.5MG [Suspect]
     Indication: MULTIPLE SCLEROSIS
     Dosage: 0.5 MG, QD, ORAL
     Route: 048
     Dates: start: 20110331, end: 20110415
  2. VIVARIN (CAFFEINE) [Concomitant]
  3. BACLOFEN (BACLOFEN) [Concomitant]
  4. PROZAC (FLUOXETINE HYDROCHLORIDE) [Concomitant]
  5. FAMPRIDINE (FAMPRIDINE) [Concomitant]
  6. PROVIGIL (MODAFINIL) [Concomitant]
  7. VESICARE (SOLIFENACIN) [Concomitant]

REACTIONS (4)
  - Photosensitivity reaction [None]
  - NAUSEA [None]
  - DECREASED APPETITE [None]
  - Amenorrhoea [None]
